FAERS Safety Report 12920032 (Version 3)
Quarter: 2017Q1

REPORT INFORMATION
  Report Type: Spontaneous
  Country: JP (occurrence: JP)
  Receive Date: 20161108
  Receipt Date: 20170310
  Transmission Date: 20170428
  Serious: Yes (Hospitalization, Other)
  Sender: FDA-Public Use
  Company Number: JP-TEVA-707418ISR

PATIENT
  Age: 63 Year
  Sex: Male

DRUGS (1)
  1. ACTONEL [Suspect]
     Active Substance: RISEDRONATE SODIUM
     Indication: OSTEOPOROSIS
     Route: 048
     Dates: start: 200001

REACTIONS (10)
  - Toothache [Recovered/Resolved]
  - Primary sequestrum [Recovered/Resolved]
  - Cellulitis [Unknown]
  - Osteolysis [Recovered/Resolved]
  - Osteosclerosis [Recovered/Resolved]
  - Osteonecrosis of jaw [Recovered/Resolved]
  - Fistula [Recovered/Resolved]
  - Trismus [Recovered/Resolved]
  - Pituitary-dependent Cushing^s syndrome [None]
  - Swelling face [Recovered/Resolved]

NARRATIVE: CASE EVENT DATE: 20160301
